FAERS Safety Report 12997241 (Version 1)
Quarter: 2016Q4

REPORT INFORMATION
  Report Type: Report from Study
  Country: CA (occurrence: CA)
  Receive Date: 20161205
  Receipt Date: 20161205
  Transmission Date: 20170207
  Serious: Yes (Other)
  Sender: FDA-Public Use
  Company Number: CA-AMGEN-CANSL2016168420

PATIENT
  Age: 49 Year
  Sex: Female

DRUGS (5)
  1. GABAPENTIN. [Concomitant]
     Active Substance: GABAPENTIN
     Dosage: 100 MG, QAM
  2. ENBREL [Suspect]
     Active Substance: ETANERCEPT
     Indication: ANKYLOSING SPONDYLITIS
     Dosage: 50 MG, UNK
     Route: 065
     Dates: start: 20060519
  3. QUETIAPINE. [Concomitant]
     Active Substance: QUETIAPINE
     Dosage: UNK
  4. GABAPENTIN. [Concomitant]
     Active Substance: GABAPENTIN
     Dosage: 200 MG, QHS
  5. STADOL [Concomitant]
     Active Substance: BUTORPHANOL TARTRATE
     Dosage: 5 MG, Q4H

REACTIONS (15)
  - Ankylosing spondylitis [Unknown]
  - Abasia [Unknown]
  - Fatigue [Unknown]
  - Osteoarthritis [Unknown]
  - Crying [Unknown]
  - Visual acuity reduced [Unknown]
  - Activities of daily living impaired [Unknown]
  - Photopsia [Unknown]
  - Feeling cold [Unknown]
  - Mental disorder [Unknown]
  - Anxiety [Unknown]
  - Depressed mood [Unknown]
  - Sleep disorder due to a general medical condition [Unknown]
  - Ocular neoplasm [Unknown]
  - Hyperhidrosis [Unknown]

NARRATIVE: CASE EVENT DATE: 2013
